FAERS Safety Report 6869848-8 (Version None)
Quarter: 2010Q3

REPORT INFORMATION
  Report Type: 
  Country: None (occurrence: None)
  Receive Date: 20100722
  Receipt Date: 20080902
  Transmission Date: 20110219
  Serious: No
  Sender: FDA-Public Use
  Company Number: US-PFIZER INC-2008074797

PATIENT
  Sex: Female
  Weight: 49.9 kg

DRUGS (1)
  1. CHANTIX [Suspect]
     Indication: SMOKING CESSATION THERAPY

REACTIONS (11)
  - ANGER [None]
  - CRYING [None]
  - DEREALISATION [None]
  - FATIGUE [None]
  - FRUSTRATION [None]
  - HEADACHE [None]
  - HOSTILITY [None]
  - IRRITABILITY [None]
  - NAUSEA [None]
  - VOMITING [None]
  - WEIGHT DECREASED [None]
